FAERS Safety Report 8956002 (Version 2)
Quarter: 2013Q4

REPORT INFORMATION
  Report Type: Report from Study
  Country: US (occurrence: US)
  Receive Date: 20121210
  Receipt Date: 20131209
  Transmission Date: 20140711
  Serious: Yes (Hospitalization)
  Sender: FDA-Public Use
  Company Number: US-ELI_LILLY_AND_COMPANY-US201211008760

PATIENT
  Age: 91 Year
  Sex: Male

DRUGS (7)
  1. TERIPARATIDE [Suspect]
     Indication: OSTEOPOROSIS
     Dosage: 20 UG, QD
     Route: 065
     Dates: start: 20120507
  2. TERIPARATIDE [Suspect]
     Dosage: UNK, QD
     Route: 065
     Dates: start: 20120507
  3. LOSARTAN [Concomitant]
  4. VITAMIN D [Concomitant]
  5. METOPROLOL [Concomitant]
  6. COUMADIN [Concomitant]
  7. OMEPRAZOLE [Concomitant]

REACTIONS (4)
  - Urinary bladder haemorrhage [Recovered/Resolved]
  - Blood urine present [Recovered/Resolved]
  - Red blood cell count decreased [Unknown]
  - Hypoacusis [Unknown]
